FAERS Safety Report 11691817 (Version 2)
Quarter: 2016Q1

REPORT INFORMATION
  Report Type: Spontaneous
  Country: US (occurrence: US)
  Receive Date: 20151103
  Receipt Date: 20160121
  Transmission Date: 20160525
  Serious: No
  Sender: FDA-Public Use
  Company Number: US-OTSUKA-2015_009175

PATIENT
  Sex: Male

DRUGS (3)
  1. REXULTI [Suspect]
     Active Substance: BREXPIPRAZOLE
     Indication: BIPOLAR DISORDER
     Dosage: 1 MG (ABOUT A WEEK)
     Route: 048
     Dates: start: 2015, end: 2015
  2. REXULTI [Suspect]
     Active Substance: BREXPIPRAZOLE
     Dosage: 2 MG
     Route: 048
     Dates: start: 2015
  3. REXULTI [Suspect]
     Active Substance: BREXPIPRAZOLE
     Indication: DEPRESSION
     Dosage: 0.5 MG, (ABOUT A WEEK)
     Route: 048
     Dates: start: 2015, end: 2015

REACTIONS (2)
  - Off label use [Unknown]
  - Ejaculation failure [Unknown]

NARRATIVE: CASE EVENT DATE: 2015
